FAERS Safety Report 19899355 (Version 9)
Quarter: 2025Q2

REPORT INFORMATION
  Report Type: Report from Study
  Country: US (occurrence: US)
  Receive Date: 20210929
  Receipt Date: 20250623
  Transmission Date: 20250717
  Serious: Yes (Other)
  Sender: TAKEDA
  Company Number: US-TAKEDA-2021TUS037917

PATIENT
  Sex: Female
  Weight: 63.002 kg

DRUGS (17)
  1. HUMAN IMMUNOGLOBULIN G\HYALURONIDASE RECOMBINANT HUMAN [Suspect]
     Active Substance: HUMAN IMMUNOGLOBULIN G\HYALURONIDASE (HUMAN RECOMBINANT)
     Indication: Immunodeficiency common variable
     Dosage: 30 GRAM, Q4WEEKS
  2. HUMAN IMMUNOGLOBULIN G\HYALURONIDASE RECOMBINANT HUMAN [Suspect]
     Active Substance: HUMAN IMMUNOGLOBULIN G\HYALURONIDASE (HUMAN RECOMBINANT)
     Dosage: 40 GRAM, Q4WEEKS
  3. HUMAN IMMUNOGLOBULIN G\HYALURONIDASE RECOMBINANT HUMAN [Suspect]
     Active Substance: HUMAN IMMUNOGLOBULIN G\HYALURONIDASE (HUMAN RECOMBINANT)
     Dosage: 40 GRAM, MONTHLY
  4. AMOXICILLIN [Suspect]
     Active Substance: AMOXICILLIN
     Indication: Product used for unknown indication
  5. DIPHENHYDRAMINE HYDROCHLORIDE [Concomitant]
     Active Substance: DIPHENHYDRAMINE HYDROCHLORIDE
  6. CARVEDILOL [Concomitant]
     Active Substance: CARVEDILOL
  7. ATORVASTATIN CALCIUM [Concomitant]
     Active Substance: ATORVASTATIN CALCIUM
  8. ACETAMINOPHEN [Concomitant]
     Active Substance: ACETAMINOPHEN
  9. FISH OIL [Concomitant]
     Active Substance: FISH OIL
  10. VITAMIN E [Concomitant]
     Active Substance: .ALPHA.-TOCOPHEROL
  11. SODIUM CHLORIDE [Concomitant]
     Active Substance: SODIUM CHLORIDE
  12. FAMOTIDINE [Concomitant]
     Active Substance: FAMOTIDINE
  13. ASPIRIN [Concomitant]
     Active Substance: ASPIRIN
  14. MAGNESIUM [Concomitant]
     Active Substance: MAGNESIUM
  15. LISINOPRIL [Concomitant]
     Active Substance: LISINOPRIL
  16. LIDOCAINE [Concomitant]
     Active Substance: LIDOCAINE
  17. EPINEPHRINE [Concomitant]
     Active Substance: EPINEPHRINE

REACTIONS (12)
  - Sjogren^s syndrome [Unknown]
  - Eye irritation [Unknown]
  - Sinusitis [Unknown]
  - Upper respiratory tract infection [Unknown]
  - Sensitivity to weather change [Unknown]
  - Illness [Unknown]
  - Bronchitis [Unknown]
  - Fungal infection [Unknown]
  - Respiratory syncytial virus infection [Unknown]
  - Eye swelling [Unknown]
  - Lymphadenopathy [Unknown]
  - Cough [Unknown]
